FAERS Safety Report 25067341 (Version 1)
Quarter: 2025Q1

REPORT INFORMATION
  Report Type: Spontaneous
  Country: US (occurrence: None)
  Receive Date: 20250312
  Receipt Date: 20250312
  Transmission Date: 20250409
  Serious: Yes (Hospitalization)
  Sender: ENCUBE ETHICALS
  Company Number: US-Encube-001684

PATIENT
  Age: 16 Year
  Sex: Male

DRUGS (3)
  1. TACROLIMUS [Suspect]
     Active Substance: TACROLIMUS
     Indication: Nephrotic syndrome
     Dosage: 2-3 MG
  2. LISINOPRIL D [Concomitant]
  3. ATORVASTATIN [Concomitant]
     Active Substance: ATORVASTATIN

REACTIONS (11)
  - Toxicity to various agents [Recovered/Resolved]
  - Nausea [Recovered/Resolved]
  - Vomiting [Recovered/Resolved]
  - Dizziness [Recovered/Resolved]
  - Chills [Recovered/Resolved]
  - Tremor [Recovered/Resolved]
  - Glycosuria [Recovered/Resolved]
  - Drug interaction [Recovered/Resolved]
  - Oliguria [Recovered/Resolved]
  - Off label use [Unknown]
  - Blood creatinine increased [Recovered/Resolved]
